FAERS Safety Report 8276166 (Version 4)
Quarter: 2012Q4

REPORT INFORMATION
  Report Type: Report from Study
  Country: IT (occurrence: IT)
  Receive Date: 20111206
  Receipt Date: 20120912
  Transmission Date: 20130627
  Serious: Yes (Death, Hospitalization)
  Sender: FDA-Public Use
  Company Number: IT-CELGENEUS-083-21880-11113556

PATIENT
  Age: 67 Year
  Sex: Female

DRUGS (5)
  1. REVLIMID [Suspect]
     Indication: LARGE B-CELL LYMPHOMA SUBTYPE PRIMARY MEDIASTINAL (THYMIC) LARGE B-CELL LYMPHOMA
     Route: 048
     Dates: start: 20100407, end: 20100415
  2. REVLIMID [Suspect]
     Route: 048
     Dates: start: 20091113
  3. DEXAMETHASONE [Concomitant]
     Indication: B-CELL LYMPHOMA NOS
     Route: 065
  4. DEXAMETHASONE [Concomitant]
     Indication: IMMUNOSUPPRESSION
  5. COUMADINE [Concomitant]
     Indication: DRUG USE FOR UNKNOWN INDICATION
     Route: 065

REACTIONS (2)
  - Primary mediastinal large B-cell lymphoma [Fatal]
  - Herpes zoster [Recovered/Resolved]
